FAERS Safety Report 8809683 (Version 1)
Quarter: 2012Q4

REPORT INFORMATION
  Report Type: 
  Country: US (occurrence: US)
  Receive Date: 20120926
  Receipt Date: 20120926
  Transmission Date: 20130627
  Serious: Yes (Death, Other)
  Sender: FDA-Public Use
  Company Number: US-ROCHE-1128394

PATIENT
  Sex: Male

DRUGS (5)
  1. AVASTIN [Suspect]
     Indication: PANCREATIC CARCINOMA
     Route: 065
     Dates: start: 20050601
  2. GEMZAR [Suspect]
     Indication: PANCREATIC CARCINOMA
  3. FOLINIC ACID [Suspect]
     Indication: PANCREATIC CARCINOMA
  4. FLUOROURACIL [Suspect]
     Indication: PANCREATIC CARCINOMA
  5. OXALIPLATIN [Suspect]
     Indication: PANCREATIC CARCINOMA

REACTIONS (2)
  - Death [Fatal]
  - Disease progression [Unknown]
